FAERS Safety Report 5525518-X (Version None)
Quarter: 2007Q4

REPORT INFORMATION
  Report Type: 
  Country: None (occurrence: None)
  Receive Date: 20071126
  Receipt Date: 20071119
  Transmission Date: 20080405
  Serious: Yes (Life-Threatening, Hospitalization, Other)
  Sender: FDA-Public Use
  Company Number: A0695170A

PATIENT
  Age: 13 Year
  Sex: Female

DRUGS (3)
  1. LAMICTAL [Suspect]
     Indication: BIPOLAR DISORDER
     Dosage: 25MG THREE TIMES PER DAY
     Route: 048
     Dates: start: 20070901, end: 20071001
  2. DEPAKOTE [Concomitant]
     Dosage: 250MG THREE TIMES PER DAY
     Dates: start: 20070301
  3. ABILIFY [Concomitant]
     Dosage: 5MG PER DAY

REACTIONS (5)
  - EYE DISORDER [None]
  - EYELID FUNCTION DISORDER [None]
  - LIP EROSION [None]
  - STEVENS-JOHNSON SYNDROME [None]
  - TOXIC EPIDERMAL NECROLYSIS [None]
